FAERS Safety Report 14184499 (Version 1)
Quarter: 2017Q4

REPORT INFORMATION
  Report Type: Spontaneous
  Country: GR (occurrence: GR)
  Receive Date: 20171113
  Receipt Date: 20171113
  Transmission Date: 20180321
  Serious: Yes (Other)
  Sender: FDA-Public Use
  Company Number: GR-ELI_LILLY_AND_COMPANY-GR201711000936

PATIENT
  Age: 67 Year
  Sex: Male

DRUGS (6)
  1. TRILEPTAL [Concomitant]
     Active Substance: OXCARBAZEPINE
     Indication: MUSCLE SPASMS
     Dosage: UNK, UNKNOWN
     Route: 065
  2. MIOREL                             /00252601/ [Concomitant]
     Indication: JOINT ANKYLOSIS
     Dosage: UNK, UNKNOWN
     Route: 065
     Dates: start: 201710, end: 20171031
  3. LADOSE 20MG [Suspect]
     Active Substance: FLUOXETINE HYDROCHLORIDE
     Indication: DEPRESSION
     Dosage: 20 MG, DAILY
     Route: 048
     Dates: start: 201701
  4. FOSFOCIN /00552502/ [Interacting]
     Active Substance: FOSFOMYCIN CALCIUM
     Indication: URINARY TRACT INFECTION
     Dosage: UNK, EVERY TEN DAYS
     Route: 065
     Dates: start: 201701
  5. ZYPREXA ZYDIS [Concomitant]
     Active Substance: OLANZAPINE
     Indication: PRODUCT USED FOR UNKNOWN INDICATION
     Dosage: UNK, DAILY
     Route: 065
  6. LOSEC [Concomitant]
     Active Substance: OMEPRAZOLE
     Indication: GASTRIC DISORDER
     Dosage: UNK, UNKNOWN
     Route: 065

REACTIONS (3)
  - White blood cell count decreased [Not Recovered/Not Resolved]
  - Drug interaction [Unknown]
  - Wrong technique in product usage process [Unknown]

NARRATIVE: CASE EVENT DATE: 20171026
